FAERS Safety Report 19601926 (Version 2)
Quarter: 2021Q3

REPORT INFORMATION
  Report Type: Spontaneous
  Country: US (occurrence: US)
  Receive Date: 20210723
  Receipt Date: 20210908
  Transmission Date: 20211014
  Serious: Yes (Other)
  Sender: FDA-Public Use
  Company Number: US-AMNEAL PHARMACEUTICALS-2021-AMRX-01901

PATIENT
  Age: 17 Year
  Sex: Female

DRUGS (1)
  1. ISOTRETINOIN. [Suspect]
     Active Substance: ISOTRETINOIN
     Indication: PRODUCT USED FOR UNKNOWN INDICATION
     Dosage: 30 MILLIGRAM, BID
     Route: 065
     Dates: start: 20201210, end: 20210515

REACTIONS (5)
  - Exposure during pregnancy [Unknown]
  - Dry skin [Unknown]
  - Abortion induced [Unknown]
  - Headache [Unknown]
  - Lip dry [Unknown]

NARRATIVE: CASE EVENT DATE: 202106
